FAERS Safety Report 5933802-0 (Version None)
Quarter: 2008Q4

REPORT INFORMATION
  Report Type: 
  Country: None (occurrence: None)
  Receive Date: 20081027
  Receipt Date: 20081021
  Transmission Date: 20090506
  Serious: Yes (Death, Other)
  Sender: FDA-Public Use
  Company Number: LTI2008A00246

PATIENT
  Age: 93 Year
  Sex: Male

DRUGS (6)
  1. OGAST 15 MG (LANSOPRAZOLE) (CAPSULES) [Suspect]
     Indication: DUODENITIS
     Dosage: 15 MG (15 MG, 1 IN 1 D) ORAL
     Route: 048
     Dates: start: 19930101, end: 20080801
  2. FUROSEMIDE [Suspect]
     Indication: CARDIAC FAILURE
     Dosage: 60 MG (60 MG, 1 IN 1 D) ORAL
     Route: 048
     Dates: start: 20050101, end: 20080824
  3. DIGOXIN [Concomitant]
  4. ALDACTONE [Concomitant]
  5. ATENOLOL [Concomitant]
  6. PREVISCAN (FLUINDIONE) [Concomitant]

REACTIONS (2)
  - AUTOIMMUNE THROMBOCYTOPENIA [None]
  - THROMBOCYTOPENIA [None]
